FAERS Safety Report 8134181-3 (Version None)
Quarter: 2012Q1

REPORT INFORMATION
  Report Type: 
  Country: None (occurrence: None)
  Receive Date: 20120209
  Receipt Date: 20120130
  Transmission Date: 20120608
  Serious: Yes (Other)
  Sender: FDA-Public Use
  Company Number: IPC201201-000037

PATIENT
  Sex: Female
  Weight: 63.5036 kg

DRUGS (5)
  1. METOPROLOL TARTRATE [Suspect]
     Indication: HYPERTENSION
     Dosage: 50 MG ONCE A DAY, ORAL, 50 MG TWO TIMES A DAY
     Route: 048
  2. METOPROLOL TARTRATE [Suspect]
     Indication: HEART RATE INCREASED
     Dosage: 50 MG ONCE A DAY, ORAL, 50 MG TWO TIMES A DAY
     Route: 048
  3. CENTRUM SILVER FOR WOMEN [Concomitant]
  4. ASPIRIN [Concomitant]
  5. VITAMIN D [Concomitant]

REACTIONS (3)
  - ATRIAL FIBRILLATION [None]
  - CONSTIPATION [None]
  - HALLUCINATION [None]
